FAERS Safety Report 19491008 (Version 2)
Quarter: 2023Q4

REPORT INFORMATION
  Report Type: Spontaneous
  Country: DE (occurrence: DE)
  Receive Date: 20210705
  Receipt Date: 20231019
  Transmission Date: 20240110
  Serious: Yes (Death, Other)
  Sender: FDA-Public Use
  Company Number: DE-PFIZER INC-2021697661

PATIENT
  Age: 7 Decade
  Sex: Female

DRUGS (2)
  1. PEMBROLIZUMAB [Suspect]
     Active Substance: PEMBROLIZUMAB
     Indication: Clear cell renal cell carcinoma
     Dosage: 400 MG, EVERY 3 WEEKS
     Dates: start: 20200211
  2. INLYTA [Suspect]
     Active Substance: AXITINIB
     Indication: Clear cell renal cell carcinoma
     Dosage: 5 MG, 2X/DAY
     Dates: start: 20200211

REACTIONS (3)
  - Death [Fatal]
  - Neoplasm progression [Unknown]
  - Off label use [Unknown]
